FAERS Safety Report 21377659 (Version 1)
Quarter: 2022Q3

REPORT INFORMATION
  Report Type: Spontaneous
  Country: US (occurrence: US)
  Receive Date: 20220926
  Receipt Date: 20220926
  Transmission Date: 20221027
  Serious: No
  Sender: FDA-Public Use
  Company Number: US-PFIZER INC-202201182470

PATIENT
  Sex: Female

DRUGS (1)
  1. PANTOPRAZOLE [Suspect]
     Active Substance: PANTOPRAZOLE
     Dosage: 40 MG
     Dates: start: 20220921

REACTIONS (2)
  - Burning sensation [Unknown]
  - Dry mouth [Unknown]

NARRATIVE: CASE EVENT DATE: 20220921
